FAERS Safety Report 19997231 (Version 1)
Quarter: 2021Q4

REPORT INFORMATION
  Report Type: Other
  Country: AU (occurrence: AU)
  Receive Date: 20211026
  Receipt Date: 20211026
  Transmission Date: 20220303
  Serious: Yes (Other)
  Sender: FDA-Public Use
  Company Number: AU-YOUNGTECH PHARMACEUTICALS, INC.-2121006

PATIENT
  Age: 80 Year
  Sex: Male

DRUGS (2)
  1. METOPROLOL TARTRATE [Suspect]
     Active Substance: METOPROLOL TARTRATE
     Indication: Atrial fibrillation
     Route: 065
  2. AMIODARONE HYDROCHLORIDE [Suspect]
     Active Substance: AMIODARONE HYDROCHLORIDE
     Route: 065

REACTIONS (2)
  - Hypotension [Unknown]
  - Syncope [Unknown]
